FAERS Safety Report 18584934 (Version 1)
Quarter: 2020Q4

REPORT INFORMATION
  Report Type: Spontaneous
  Country: US (occurrence: US)
  Receive Date: 20201204
  Receipt Date: 20201204
  Transmission Date: 20210114
  Serious: Yes (Hospitalization)
  Sender: FDA-Public Use
  Company Number: None

PATIENT
  Age: 65 Year
  Sex: Male

DRUGS (5)
  1. ALBUTEROL SULFATE. [Concomitant]
     Active Substance: ALBUTEROL SULFATE
  2. ISOSORBIDE DINITRATE. [Concomitant]
     Active Substance: ISOSORBIDE DINITRATE
  3. JULUCA [Suspect]
     Active Substance: DOLUTEGRAVIR SODIUM\RILPIVIRINE HYDROCHLORIDE
     Indication: HIV INFECTION
     Dosage: ?          OTHER DOSE:50-25 MG;?
     Route: 048
     Dates: start: 20180613
  4. DRONABINOL. [Concomitant]
     Active Substance: DRONABINOL
  5. TESTOSTERONE CYPIONA [Concomitant]

REACTIONS (3)
  - Therapy interrupted [None]
  - Pneumonia [None]
  - Weight decreased [None]

NARRATIVE: CASE EVENT DATE: 20201030
